FAERS Safety Report 25887225 (Version 4)
Quarter: 2025Q4

REPORT INFORMATION
  Report Type: Report from Study
  Country: US (occurrence: US)
  Receive Date: 20251006
  Receipt Date: 20251212
  Transmission Date: 20260118
  Serious: No
  Sender: JOHNSON AND JOHNSON
  Company Number: US-JNJFOC-20250941772

PATIENT
  Sex: Male
  Weight: 55.338 kg

DRUGS (6)
  1. UPTRAVI [Suspect]
     Active Substance: SELEXIPAG
     Indication: Pulmonary arterial hypertension
     Dosage: UPTRAVI 1000MCG ORALLY
     Route: 048
  2. UPTRAVI [Suspect]
     Active Substance: SELEXIPAG
     Route: 048
  3. UPTRAVI [Suspect]
     Active Substance: SELEXIPAG
     Route: 048
  4. MACITENTAN\TADALAFIL [Suspect]
     Active Substance: MACITENTAN\TADALAFIL
     Indication: Product used for unknown indication
     Route: 048
  5. OPSUMIT [Concomitant]
     Active Substance: MACITENTAN
     Indication: Product used for unknown indication
  6. TADALAFIL [Concomitant]
     Active Substance: TADALAFIL
     Indication: Product used for unknown indication

REACTIONS (1)
  - Hypotension [Unknown]
